FAERS Safety Report 8740112 (Version 2)
Quarter: 2013Q1

REPORT INFORMATION
  Report Type: Spontaneous
  Country: GB (occurrence: GB)
  Receive Date: 20120823
  Receipt Date: 20130220
  Transmission Date: 20140127
  Serious: Yes (Disabling, Other)
  Sender: FDA-Public Use
  Company Number: GB-TEVA-353957ISR

PATIENT
  Age: 86 Year
  Sex: Male
  Weight: 69.8 kg

DRUGS (8)
  1. ZOPICLONE [Suspect]
     Indication: INSOMNIA
     Dosage: 3.75 MG, AT BEDTIME
     Route: 048
     Dates: start: 200103
  2. BICALUTAMIDE [Concomitant]
  3. ZOLADEX [Concomitant]
     Indication: PROSTATE CANCER
     Dosage: UNK
     Route: 058
     Dates: start: 2001
  4. SENNA [Concomitant]
     Dosage: DOSE: 1-2 NOCTE
  5. QUETIAPINE [Concomitant]
     Dosage: 50 MILLIGRAM DAILY;
  6. LANSOPRAZOLE [Concomitant]
  7. FUROSEMIDE [Concomitant]
     Dosage: 40 MILLIGRAM DAILY;
  8. ASPIRIN [Concomitant]

REACTIONS (2)
  - Dementia [Unknown]
  - Inappropriate schedule of drug administration [Unknown]
